FAERS Safety Report 8829548 (Version 1)
Quarter: 2012Q4

REPORT INFORMATION
  Report Type: 
  Country: US (occurrence: US)
  Receive Date: 20121008
  Receipt Date: 20121008
  Transmission Date: 20130627
  Serious: No
  Sender: FDA-Public Use
  Company Number: US-TEVA-326720USA

PATIENT
  Weight: 8.63 kg

DRUGS (3)
  1. QVAR [Suspect]
     Indication: BRONCHIAL HYPERREACTIVITY
     Dosage: 80 Microgram Daily; 160 mcg
     Dates: start: 20111201
  2. FAMOTIDINE [Concomitant]
     Indication: GASTROOESOPHAGEAL REFLUX DISEASE
     Dosage: .1667 ml Daily;
     Route: 048
  3. SALBUTAMOL [Concomitant]
     Indication: BRONCHIAL HYPERREACTIVITY
     Dosage: 1-2 puffs prn

REACTIONS (1)
  - Wheezing [Not Recovered/Not Resolved]
